FAERS Safety Report 17728206 (Version 2)
Quarter: 2020Q2

REPORT INFORMATION
  Report Type: Spontaneous
  Country: TR (occurrence: TR)
  Receive Date: 20200430
  Receipt Date: 20200525
  Transmission Date: 20200714
  Serious: Yes (Hospitalization)
  Sender: FDA-Public Use
  Company Number: TR-TEVA-2020-TR-1227935

PATIENT
  Age: 53 Year
  Sex: Female

DRUGS (1)
  1. TAMOXIFEN [Suspect]
     Active Substance: TAMOXIFEN
     Indication: INVASIVE DUCTAL BREAST CARCINOMA
     Dosage: 20 MILLIGRAM DAILY;
     Route: 065
     Dates: start: 2014, end: 2017

REACTIONS (4)
  - Hyperplasia [Recovered/Resolved]
  - Endometrial hyperplasia [Recovered/Resolved]
  - Leiomyoma [Recovered/Resolved]
  - Uterine polyp [Recovered/Resolved]
